FAERS Safety Report 9955924 (Version 1)
Quarter: 2014Q1

REPORT INFORMATION
  Report Type: Report from Study
  Country: US (occurrence: US)
  Receive Date: 20140304
  Receipt Date: 20140304
  Transmission Date: 20141002
  Serious: No
  Sender: FDA-Public Use
  Company Number: US-ABBVIE-13P-163-1090213-00

PATIENT
  Age: 59 Year
  Sex: Male

DRUGS (5)
  1. HUMIRA [Suspect]
     Indication: PSORIASIS
     Dosage: FIRST WEEK
  2. HUMIRA [Suspect]
     Dosage: SECOND WEEK
  3. HUMIRA [Suspect]
  4. ALLOPURINOL [Concomitant]
     Indication: GOUT
     Dosage: DAILY
  5. ZESTRIL [Concomitant]
     Indication: HYPERTENSION
     Dosage: DAILY

REACTIONS (5)
  - Weight increased [Not Recovered/Not Resolved]
  - Increased appetite [Unknown]
  - Pollakiuria [Unknown]
  - Fatigue [Unknown]
  - Myalgia [Unknown]
